FAERS Safety Report 7550509-7 (Version None)
Quarter: 2011Q2

REPORT INFORMATION
  Report Type: 
  Country: None (occurrence: None)
  Receive Date: 20110615
  Receipt Date: 20110606
  Transmission Date: 20111010
  Serious: Yes (Other)
  Sender: FDA-Public Use
  Company Number: US-ELI_LILLY_AND_COMPANY-US201106002442

PATIENT
  Age: 55 Year
  Sex: Female

DRUGS (1)
  1. ZYPREXA [Suspect]
     Dosage: 20 MG, UNK

REACTIONS (5)
  - WRONG DRUG ADMINISTERED [None]
  - CEREBRAL CALCIFICATION [None]
  - CEREBROVASCULAR ACCIDENT [None]
  - BLOOD PRESSURE INCREASED [None]
  - LEFT VENTRICULAR HYPERTROPHY [None]
